FAERS Safety Report 4963453-6 (Version None)
Quarter: 2006Q2

REPORT INFORMATION
  Report Type: 
  Country: None (occurrence: None)
  Receive Date: 20060405
  Receipt Date: 20060329
  Transmission Date: 20061013
  Serious: Yes (Hospitalization)
  Sender: FDA-Public Use
  Company Number: 2006CG00591

PATIENT
  Age: 8 Year
  Sex: Male
  Weight: 38 kg

DRUGS (2)
  1. DIPRIVAN [Suspect]
     Indication: ANAESTHESIA
     Route: 042
     Dates: start: 20060329, end: 20060329
  2. ANAESTHETICS [Concomitant]
     Indication: ANAESTHESIA
     Dates: start: 20060329, end: 20060329

REACTIONS (3)
  - CYANOSIS [None]
  - INJECTION SITE EXTRAVASATION [None]
  - OEDEMA PERIPHERAL [None]
